FAERS Safety Report 18126439 (Version 1)
Quarter: 2020Q3

REPORT INFORMATION
  Report Type: Spontaneous
  Country: ES (occurrence: ES)
  Receive Date: 20200808
  Receipt Date: 20200808
  Transmission Date: 20201103
  Serious: Yes (Hospitalization)
  Sender: FDA-Public Use
  Company Number: NVSC2020ES217377

PATIENT
  Age: 53 Year
  Sex: Male

DRUGS (3)
  1. VALTREX [Concomitant]
     Active Substance: VALACYCLOVIR HYDROCHLORIDE
     Dosage: 1 G, Q8H
     Route: 048
     Dates: start: 20200514, end: 20200520
  2. VALTREX [Concomitant]
     Active Substance: VALACYCLOVIR HYDROCHLORIDE
     Indication: HERPES ZOSTER
     Dosage: 1 G, Q8H ( 1.000 MG COMPRIMIDOS RECUBIERTOS CON PELICULA, 21 COMPRIMIDOS)
     Route: 048
     Dates: start: 20200409, end: 20200421
  3. AMOXICILLIN, CLAVULANIC ACID [Suspect]
     Active Substance: AMOXICILLIN\CLAVULANIC ACID
     Indication: HERPES ZOSTER
     Dosage: 1 DF, Q8H (875/125MG)
     Route: 048
     Dates: start: 20200412, end: 20200418

REACTIONS (1)
  - Hepatitis acute [Recovering/Resolving]

NARRATIVE: CASE EVENT DATE: 20200529
